FAERS Safety Report 8996691 (Version 1)
Quarter: 2012Q4

REPORT INFORMATION
  Report Type: Spontaneous
  Country: SE (occurrence: None)
  Receive Date: 20121220
  Receipt Date: 20121220
  Transmission Date: 20130627
  Serious: Yes (Other)
  Sender: FDA-Public Use
  Company Number: SE-ACCORD-015581

PATIENT
  Age: 67 Year
  Sex: Male

DRUGS (1)
  1. FINASTERIDE [Suspect]
     Indication: DRUG USE FOR UNKNOWN INDICATION
     Dates: start: 19990314, end: 20120525

REACTIONS (1)
  - Thrombosis [None]
